FAERS Safety Report 12994477 (Version 1)
Quarter: 2016Q4

REPORT INFORMATION
  Report Type: Spontaneous
  Country: CA (occurrence: CA)
  Receive Date: 20161202
  Receipt Date: 20161202
  Transmission Date: 20170207
  Serious: Yes (Other)
  Sender: FDA-Public Use
  Company Number: CA-ASTELLAS-2016US047010

PATIENT
  Age: 12 Year
  Sex: Male

DRUGS (2)
  1. TACROLIMUS. [Suspect]
     Active Substance: TACROLIMUS
     Indication: LUNG TRANSPLANT
     Dosage: UNK UNK, UNKNOWN FREQ.
     Route: 065
  2. TACROLIMUS. [Suspect]
     Active Substance: TACROLIMUS
     Indication: LUNG TRANSPLANT
     Dosage: UNK UNK, UNKNOWN FREQ.
     Route: 065

REACTIONS (11)
  - Pleural thickening [Unknown]
  - Complications of transplanted lung [Unknown]
  - Pulmonary fibrosis [Unknown]
  - Drug level fluctuating [Unknown]
  - Respiratory syncytial virus infection [Unknown]
  - Obstructive airways disorder [Unknown]
  - Cytomegalovirus infection [Recovered/Resolved]
  - Pneumonia [Unknown]
  - Off label use [Unknown]
  - Transplant rejection [Unknown]
  - Obliterative bronchiolitis [Unknown]
